FAERS Safety Report 4295868-6 (Version None)
Quarter: 2004Q1

REPORT INFORMATION
  Report Type: 
  Country: None (occurrence: None)
  Receive Date: 20040216
  Receipt Date: 20031124
  Transmission Date: 20041129
  Serious: No
  Sender: FDA-Public Use
  Company Number: US-GLAXOSMITHKLINE-A0441005A

PATIENT
  Sex: Female

DRUGS (5)
  1. LAMICTAL [Suspect]
     Indication: BIPOLAR DISORDER
     Dosage: 50MG TWICE PER DAY
     Route: 048
     Dates: start: 20031030
  2. LEXAPRO [Concomitant]
  3. SEROQUEL [Concomitant]
  4. LIPITOR [Concomitant]
  5. TRANXENE [Concomitant]

REACTIONS (1)
  - RASH [None]
